FAERS Safety Report 5780119-3 (Version None)
Quarter: 2008Q2

REPORT INFORMATION
  Report Type: 
  Country: None (occurrence: None)
  Receive Date: 20080620
  Receipt Date: 20080611
  Transmission Date: 20081010
  Serious: Yes (Other)
  Sender: FDA-Public Use
  Company Number: DK-JNJFOC-20080406454

PATIENT
  Sex: Female

DRUGS (4)
  1. DOXORUBICIN HCL [Suspect]
     Indication: OVARIAN CANCER
     Route: 042
  2. CIPROFLOXACIN HCL [Concomitant]
     Route: 065
  3. MAREVAN [Concomitant]
     Route: 065
  4. THIAMAZOL [Concomitant]
     Route: 065

REACTIONS (3)
  - BLISTER [None]
  - ORAL PAIN [None]
  - SKIN ULCER [None]
